FAERS Safety Report 8896447 (Version 1)
Quarter: 2012Q4

REPORT INFORMATION
  Report Type: Spontaneous
  Country: US (occurrence: None)
  Receive Date: 20121107
  Receipt Date: 20121107
  Transmission Date: 20130627
  Serious: Yes (Other)
  Sender: FDA-Public Use
  Company Number: None

PATIENT
  Sex: Female
  Weight: 50 kg

DRUGS (4)
  1. EVOXAC [Suspect]
     Indication: SJOGREN^S SYNDROME
     Dosage: 30 mg once daily Orally 047
     Route: 048
     Dates: start: 20120723
  2. EVOXAC [Suspect]
     Indication: SJOGREN^S SYNDROME
     Dates: start: 20120727
  3. LIPITOR [Concomitant]
  4. LANSOPRAZOLE [Concomitant]

REACTIONS (5)
  - Nausea [None]
  - Vomiting [None]
  - Bone pain [None]
  - Arthralgia [None]
  - Movement disorder [None]
